FAERS Safety Report 9819006 (Version 1)
Quarter: 2014Q1

REPORT INFORMATION
  Report Type: Spontaneous
  Country: GB (occurrence: GB)
  Receive Date: 20140115
  Receipt Date: 20140115
  Transmission Date: 20141002
  Serious: Yes (Other)
  Sender: FDA-Public Use
  Company Number: GB-ALLERGAN-1400243US

PATIENT
  Sex: Male

DRUGS (1)
  1. GANFORT [Suspect]
     Indication: GLAUCOMA

REACTIONS (2)
  - Cataract [Unknown]
  - Cystoid macular oedema [Unknown]
